FAERS Safety Report 14683161 (Version 3)
Quarter: 2019Q1

REPORT INFORMATION
  Report Type: Spontaneous
  Country: FR (occurrence: FR)
  Receive Date: 20180327
  Receipt Date: 20190109
  Transmission Date: 20190417
  Serious: Yes (Death)
  Sender: FDA-Public Use
  Company Number: FR-ACCORD-065156

PATIENT
  Age: 68 Year
  Sex: Male
  Weight: 184 kg

DRUGS (20)
  1. ATROVENT [Suspect]
     Active Substance: IPRATROPIUM BROMIDE
     Indication: CHRONIC OBSTRUCTIVE PULMONARY DISEASE
     Route: 055
     Dates: end: 20171024
  2. TERBUTALINE [Suspect]
     Active Substance: TERBUTALINE
     Indication: CHRONIC OBSTRUCTIVE PULMONARY DISEASE
     Route: 055
     Dates: end: 20171024
  3. CALCIUM POLYSTYRENE SULFONATE [Suspect]
     Active Substance: CALCIUM POLYSTYRENE SULFONATE
     Dates: start: 20171024
  4. SIMVASTATIN. [Suspect]
     Active Substance: SIMVASTATIN
     Indication: CARDIOVASCULAR EVENT PROPHYLAXIS
     Route: 048
     Dates: end: 20171024
  5. HYDROSOL POLYVITAMINE PHARMADEVELOPPEMENT [Suspect]
     Active Substance: VITAMINS
     Indication: HYPOVITAMINOSIS
     Route: 048
     Dates: end: 20171024
  6. NOVOMIX [Suspect]
     Active Substance: INSULIN ASPART
     Indication: DIABETES MELLITUS
     Dosage: 30 100 U/ML
     Route: 058
     Dates: end: 20171024
  7. SPECIAFOLDINE [Suspect]
     Active Substance: FOLIC ACID
     Indication: HYPOVITAMINOSIS
     Dosage: STRENGTH - 5 MG
     Route: 048
     Dates: end: 20171025
  8. PANTOPRAZOLE [Concomitant]
     Active Substance: PANTOPRAZOLE
  9. TAVANIC [Suspect]
     Active Substance: LEVOFLOXACIN
     Indication: OSTEITIS
     Dosage: STRENGTH - 500 MG
     Route: 048
     Dates: start: 20171013, end: 20171025
  10. HYDROXOCOBALAMIN [Suspect]
     Active Substance: HYDROXOCOBALAMIN
     Indication: HYPOVITAMINOSIS
     Route: 048
     Dates: end: 20171024
  11. PARACETAMOL [Concomitant]
     Active Substance: ACETAMINOPHEN
  12. FLAGYL [Concomitant]
     Active Substance: METRONIDAZOLE\METRONIDAZOLE HYDROCHLORIDE
     Dosage: STRENGTH - 500 MG
  13. SILODYX [Suspect]
     Active Substance: SILODOSIN
     Indication: BENIGN PROSTATIC HYPERPLASIA
     Dosage: STRENGTH - 8 MG
     Route: 048
     Dates: end: 20171024
  14. FUROSEMIDE. [Concomitant]
     Active Substance: FUROSEMIDE
  15. NOVONORM [Suspect]
     Active Substance: REPAGLINIDE
     Indication: DIABETES MELLITUS
     Route: 048
     Dates: end: 20171024
  16. FLUINDIONE [Suspect]
     Active Substance: FLUINDIONE
     Indication: ATRIAL FIBRILLATION
     Dosage: STRENGTH 20 MG, SCORED TABLET
     Route: 048
     Dates: end: 20171024
  17. VICTOZA [Suspect]
     Active Substance: LIRAGLUTIDE
     Indication: DIABETES MELLITUS
     Dosage: STRENGTH - 6 MG/ML
     Route: 058
     Dates: end: 20171024
  18. INSULIN ASPART [Concomitant]
     Active Substance: INSULIN ASPART
  19. BACTRIM [Suspect]
     Active Substance: SULFAMETHOXAZOLE\TRIMETHOPRIM
     Indication: OSTEITIS
     Dosage: ALSO RECEIVED 1 DF
     Route: 048
     Dates: start: 20171016, end: 20171025
  20. HEPARIN [Concomitant]
     Active Substance: HEPARIN SODIUM

REACTIONS (1)
  - Acute kidney injury [Fatal]

NARRATIVE: CASE EVENT DATE: 20171023
